FAERS Safety Report 19847535 (Version 1)
Quarter: 2021Q3

REPORT INFORMATION
  Report Type: Spontaneous
  Country: SE (occurrence: SE)
  Receive Date: 20210917
  Receipt Date: 20210917
  Transmission Date: 20211014
  Serious: Yes (Hospitalization, Other)
  Sender: FDA-Public Use
  Company Number: SE-PFIZER INC-2021867036

PATIENT
  Sex: Male

DRUGS (10)
  1. BUVIDAL [BUPRENORPHINE] [Suspect]
     Active Substance: BUPRENORPHINE
     Dosage: 16 MG, WEEKLY (1X16MG)
     Dates: start: 20210616, end: 20210616
  2. BUVIDAL [BUPRENORPHINE] [Suspect]
     Active Substance: BUPRENORPHINE
     Dosage: 32 MG, WEEKLY (3 X 32 MG)
     Dates: start: 20210616, end: 20210616
  3. LERGIGAN [PROMETHAZINE HYDROCHLORIDE] [Concomitant]
     Active Substance: PROMETHAZINE HYDROCHLORIDE
  4. BUVIDAL [BUPRENORPHINE] [Suspect]
     Active Substance: BUPRENORPHINE
     Dosage: 128 MG, MONTHLY
     Dates: start: 20210714
  5. MELATONIN [Concomitant]
     Active Substance: MELATONIN
  6. BUVIDAL [BUPRENORPHINE] [Suspect]
     Active Substance: BUPRENORPHINE
     Dosage: 128 MG, MONTHLY
     Dates: start: 202105
  7. XANOR [Suspect]
     Active Substance: ALPRAZOLAM
     Dosage: 20?30 MG/DAY
  8. BUVIDAL [BUPRENORPHINE] [Suspect]
     Active Substance: BUPRENORPHINE
     Dosage: UNK
     Dates: start: 202009
  9. BUVIDAL [BUPRENORPHINE] [Suspect]
     Active Substance: BUPRENORPHINE
     Dosage: 8 MG, WEEKLY (2 X 8 MG)
     Dates: start: 20210616, end: 20210616
  10. BUVIDAL [BUPRENORPHINE] [Suspect]
     Active Substance: BUPRENORPHINE
     Dosage: 96 MG, MONTHLY
     Dates: start: 20210623, end: 20210623

REACTIONS (5)
  - Muscle spasms [Unknown]
  - Inappropriate schedule of product administration [Recovered/Resolved]
  - Hyperhidrosis [Unknown]
  - Overdose [Unknown]
  - Epilepsy [Unknown]
